FAERS Safety Report 8498390-6 (Version None)
Quarter: 2012Q3

REPORT INFORMATION
  Report Type: 
  Country: None (occurrence: None)
  Receive Date: 20120709
  Receipt Date: 20120621
  Transmission Date: 20120928
  Serious: No
  Sender: FDA-Public Use
  Company Number: US-AMGEN-USASP2012038698

PATIENT
  Age: 52 Year
  Sex: Female

DRUGS (4)
  1. OSCAL 500+D [Concomitant]
     Dosage: UNK
  2. ENBREL [Suspect]
     Indication: RHEUMATOID ARTHRITIS
     Dosage: 50 MG, QWK
     Dates: start: 20120401
  3. EXTRA STRENGTH TYLENOL [Concomitant]
     Dosage: UNK
  4. TANDEM PLUS [Concomitant]
     Dosage: UNK

REACTIONS (1)
  - SINUSITIS [None]
